FAERS Safety Report 12933865 (Version 2)
Quarter: 2017Q1

REPORT INFORMATION
  Report Type: Report from Study
  Country: US (occurrence: US)
  Receive Date: 20161111
  Receipt Date: 20170127
  Transmission Date: 20170428
  Serious: Yes (Hospitalization)
  Sender: FDA-Public Use
  Company Number: US-BIOGEN-2016BI00315739

PATIENT
  Age: 53 Year
  Sex: Female

DRUGS (1)
  1. AVONEX [Suspect]
     Active Substance: INTERFERON BETA-1A
     Indication: MULTIPLE SCLEROSIS
     Route: 030
     Dates: start: 20000715

REACTIONS (6)
  - Fall [Recovered/Resolved]
  - Pyrexia [Recovered/Resolved]
  - Blood urine present [Not Recovered/Not Resolved]
  - Back pain [Recovered/Resolved]
  - Cystitis [Recovered/Resolved]
  - Intervertebral disc compression [Recovered/Resolved]

NARRATIVE: CASE EVENT DATE: 201505
